FAERS Safety Report 20418262 (Version 1)
Quarter: 2022Q1

REPORT INFORMATION
  Report Type: Spontaneous
  Country: US (occurrence: US)
  Receive Date: 20220202
  Receipt Date: 20220202
  Transmission Date: 20220423
  Serious: Yes (Other)
  Sender: FDA-Public Use
  Company Number: US-SA-SAC20220201001124

PATIENT
  Age: 76 Year
  Sex: Female

DRUGS (3)
  1. DUPIXENT [Suspect]
     Active Substance: DUPILUMAB
     Indication: Dermatitis atopic
     Dosage: 300 MG, QOW
     Route: 058
     Dates: start: 20210802
  2. INVANZ [Concomitant]
     Active Substance: ERTAPENEM SODIUM
  3. CELEBREX [Concomitant]
     Active Substance: CELECOXIB

REACTIONS (3)
  - Sepsis [Recovered/Resolved]
  - Kidney infection [Recovered/Resolved]
  - Pruritus [Recovered/Resolved]
